FAERS Safety Report 13663823 (Version 1)
Quarter: 2017Q2

REPORT INFORMATION
  Report Type: Spontaneous
  Country: JP (occurrence: JP)
  Receive Date: 20170619
  Receipt Date: 20170619
  Transmission Date: 20170830
  Serious: Yes (Death)
  Sender: FDA-Public Use
  Company Number: JP-AEGERION PHARMACEUTICAL, INC-AEGR002582

PATIENT

DRUGS (3)
  1. METRELEPTIN SHIONOGI [Suspect]
     Active Substance: METRELEPTIN
     Indication: LIPOATROPHY
     Dosage: 1 MG, QD
     Route: 058
     Dates: start: 20151123, end: 20151125
  2. METRELEPTIN SHIONOGI [Suspect]
     Active Substance: METRELEPTIN
     Dosage: 2 MG, QD
     Route: 058
     Dates: start: 20151126, end: 20151128
  3. METRELEPTIN SHIONOGI [Suspect]
     Active Substance: METRELEPTIN
     Dosage: 3.5 MG, QD
     Route: 058
     Dates: start: 20151129, end: 201706

REACTIONS (1)
  - Lymphoma [Fatal]
